FAERS Safety Report 6765396-4 (Version None)
Quarter: 2010Q2

REPORT INFORMATION
  Report Type: 
  Country: None (occurrence: None)
  Receive Date: 20100611
  Receipt Date: 20100603
  Transmission Date: 20101027
  Serious: Yes (Other)
  Sender: FDA-Public Use
  Company Number: US-JNJFOC-20100602643

PATIENT
  Age: 71 Year
  Sex: Male

DRUGS (8)
  1. IMODIUM [Suspect]
     Indication: DRUG USE FOR UNKNOWN INDICATION
     Route: 065
  2. EMCYT [Suspect]
     Indication: PROSTATE CANCER
     Route: 048
  3. IXABEPILONE [Suspect]
     Indication: PROSTATE CANCER
     Route: 042
  4. AMITRIPTYLINE HYDROCHLORIDE [Suspect]
     Indication: DRUG USE FOR UNKNOWN INDICATION
     Route: 065
  5. PREVACID [Suspect]
     Indication: DRUG USE FOR UNKNOWN INDICATION
     Route: 065
  6. SYNTHROID [Suspect]
     Indication: DRUG USE FOR UNKNOWN INDICATION
     Route: 065
  7. VICODIN [Concomitant]
     Route: 065
  8. ZOFRAN [Concomitant]
     Route: 065

REACTIONS (1)
  - HYPERTENSION [None]
